FAERS Safety Report 25347773 (Version 1)
Quarter: 2025Q2

REPORT INFORMATION
  Report Type: Spontaneous
  Country: US (occurrence: US)
  Receive Date: 20250522
  Receipt Date: 20250522
  Transmission Date: 20250717
  Serious: No
  Sender: MYLAN
  Company Number: US-MYLANLABS-2025M1040824

PATIENT
  Age: 55 Year
  Sex: Female
  Weight: 79.38 kg

DRUGS (8)
  1. ESTRADIOL TRANSDERMAL SYSTEM [Suspect]
     Active Substance: ESTRADIOL
     Indication: Menopausal symptoms
     Dosage: 0.05 MILLIGRAM, QD (PER DAY, TWICE WEEKLY)
     Dates: start: 20250501, end: 20250506
  2. ESTRADIOL TRANSDERMAL SYSTEM [Suspect]
     Active Substance: ESTRADIOL
     Dosage: 0.05 MILLIGRAM, QD (PER DAY, TWICE WEEKLY)
     Route: 062
     Dates: start: 20250501, end: 20250506
  3. ESTRADIOL TRANSDERMAL SYSTEM [Suspect]
     Active Substance: ESTRADIOL
     Dosage: 0.05 MILLIGRAM, QD (PER DAY, TWICE WEEKLY)
     Route: 062
     Dates: start: 20250501, end: 20250506
  4. ESTRADIOL TRANSDERMAL SYSTEM [Suspect]
     Active Substance: ESTRADIOL
     Dosage: 0.05 MILLIGRAM, QD (PER DAY, TWICE WEEKLY)
     Dates: start: 20250501, end: 20250506
  5. PROGESTERONE [Concomitant]
     Active Substance: PROGESTERONE
     Indication: Menopausal symptoms
     Dosage: 100 MILLIGRAM, QD (ONCE A DAY)
  6. PROGESTERONE [Concomitant]
     Active Substance: PROGESTERONE
     Dosage: 100 MILLIGRAM, QD (ONCE A DAY)
     Route: 065
  7. PROGESTERONE [Concomitant]
     Active Substance: PROGESTERONE
     Dosage: 100 MILLIGRAM, QD (ONCE A DAY)
     Route: 065
  8. PROGESTERONE [Concomitant]
     Active Substance: PROGESTERONE
     Dosage: 100 MILLIGRAM, QD (ONCE A DAY)

REACTIONS (2)
  - Application site pruritus [Unknown]
  - Application site erythema [Recovering/Resolving]

NARRATIVE: CASE EVENT DATE: 20250504
